FAERS Safety Report 23068952 (Version 2)
Quarter: 2023Q4

REPORT INFORMATION
  Report Type: Spontaneous
  Country: CN (occurrence: CN)
  Receive Date: 20231016
  Receipt Date: 20231019
  Transmission Date: 20240110
  Serious: Yes (Death, Life-Threatening, Hospitalization, Other)
  Sender: FDA-Public Use
  Company Number: CN-MLMSERVICE-20230929-4576699-1

PATIENT
  Age: 64 Year
  Sex: Male

DRUGS (1)
  1. METHYLPREDNISOLONE [Suspect]
     Active Substance: METHYLPREDNISOLONE
     Indication: Capillary leak syndrome
     Dosage: 40 MG

REACTIONS (4)
  - Squamous cell carcinoma [Fatal]
  - Disease progression [Fatal]
  - Pneumonia [Fatal]
  - Off label use [Unknown]
